FAERS Safety Report 11054501 (Version 1)
Quarter: 2015Q2

REPORT INFORMATION
  Report Type: Spontaneous
  Country: US (occurrence: None)
  Receive Date: 20150420
  Receipt Date: 20150420
  Transmission Date: 20150821
  Serious: Yes (Other)
  Sender: FDA-Public Use
  Company Number: ADR-2015-00741

PATIENT
  Age: 60 Year
  Sex: Female

DRUGS (6)
  1. DEMEROL [Suspect]
     Active Substance: MEPERIDINE HYDROCHLORIDE
  2. BACLOFEN INTRATHECAL [Suspect]
     Active Substance: BACLOFEN
     Indication: PAIN
  3. MORPHINE INTRATHECAL [Suspect]
     Active Substance: MORPHINE
     Indication: PAIN
  4. DILAUDID [Suspect]
     Active Substance: HYDROMORPHONE HYDROCHLORIDE
  5. CLONIDINE. [Suspect]
     Active Substance: CLONIDINE
  6. ZOFRAN [Suspect]
     Active Substance: ONDANSETRON HYDROCHLORIDE
     Route: 048

REACTIONS (7)
  - Accidental overdose [None]
  - Drug hypersensitivity [None]
  - Malaise [None]
  - Headache [None]
  - Nausea [None]
  - Device infusion issue [None]
  - Device ineffective [None]
